FAERS Safety Report 13545829 (Version 1)
Quarter: 2017Q2

REPORT INFORMATION
  Report Type: Spontaneous
  Country: US (occurrence: US)
  Receive Date: 20170515
  Receipt Date: 20170515
  Transmission Date: 20170830
  Serious: Yes (Other)
  Sender: FDA-Public Use
  Company Number: US-MYLANLABS-2017M1028229

PATIENT

DRUGS (4)
  1. ATENOLOL TABLETS, USP [Suspect]
     Active Substance: ATENOLOL
     Indication: HYPERTENSION
     Dosage: 1 DF, QD
     Route: 048
  2. ATENOLOL TABLETS, USP [Suspect]
     Active Substance: ATENOLOL
     Dosage: 1 DF, BID
     Route: 048
  3. SPIRONOLACTONE AND HYDROCHLOROTHIAZIDE [Suspect]
     Active Substance: HYDROCHLOROTHIAZIDE\SPIRONOLACTONE
     Dosage: 1 DF, BID
     Route: 048
  4. SPIRONOLACTONE AND HYDROCHLOROTHIAZIDE [Suspect]
     Active Substance: HYDROCHLOROTHIAZIDE\SPIRONOLACTONE
     Indication: HYPERTENSION
     Dosage: 1 DF, QD
     Route: 048

REACTIONS (1)
  - Blood pressure increased [Unknown]
